FAERS Safety Report 6904370-1 (Version None)
Quarter: 2010Q3

REPORT INFORMATION
  Report Type: 
  Country: None (occurrence: None)
  Receive Date: 20100804
  Receipt Date: 20090506
  Transmission Date: 20110219
  Serious: No
  Sender: FDA-Public Use
  Company Number: US-PFIZER INC-2009209616

PATIENT
  Sex: Male
  Weight: 63.049 kg

DRUGS (4)
  1. LYRICA [Suspect]
     Indication: NEUROPATHY PERIPHERAL
     Dosage: 50 MG, 2X/DAY
     Dates: start: 20090101
  2. LYRICA [Suspect]
     Indication: PRURITUS
  3. LYRICA [Suspect]
     Indication: BURNING SENSATION
  4. COZAAR [Concomitant]
     Dosage: UNK

REACTIONS (7)
  - BURNING SENSATION [None]
  - CONSTIPATION [None]
  - DRY MOUTH [None]
  - DYSURIA [None]
  - STUPOR [None]
  - VISION BLURRED [None]
  - VITAMIN B12 DECREASED [None]
